FAERS Safety Report 7624362-7 (Version None)
Quarter: 2011Q3

REPORT INFORMATION
  Report Type: 
  Country: None (occurrence: None)
  Receive Date: 20110712
  Receipt Date: 20110627
  Transmission Date: 20111222
  Serious: Yes (Other)
  Sender: FDA-Public Use
  Company Number: 1000021969

PATIENT
  Age: 50 Year
  Sex: Female
  Weight: 59 kg

DRUGS (3)
  1. MEDIATOR (BENFLUOREX) [Suspect]
     Indication: HYPERTRIGLYCERIDAEMIA
     Dosage: (1 DOSAGE FORMS),ORAL, (2 DOSAGE FORMS),ORAL, (3 DOSAGE FORMS),ORAL
     Route: 048
     Dates: start: 19980101, end: 19981201
  2. LEVOTHYROX (LEVOTHYROXINE)(TABLETS) [Suspect]
     Indication: HYPOTHYROIDISM
     Dosage: (50 MCG),ORAL, (75 MCG),ORAL
     Route: 048
     Dates: start: 19980101, end: 19981201
  3. ESCITALOPRAM [Suspect]
     Indication: DEPRESSION
     Dosage: (10 MG),ORAL
     Route: 048
     Dates: start: 20071001, end: 20081101

REACTIONS (2)
  - DYSPNOEA [None]
  - MITRAL VALVE INCOMPETENCE [None]
